FAERS Safety Report 7488559-1 (Version None)
Quarter: 2011Q2

REPORT INFORMATION
  Report Type: 
  Country: None (occurrence: None)
  Receive Date: 20110518
  Receipt Date: 20110512
  Transmission Date: 20111010
  Serious: Yes (Other)
  Sender: FDA-Public Use
  Company Number: US-SANOFI-AVENTIS-2011SA030415

PATIENT
  Age: 70 Year
  Sex: Male

DRUGS (8)
  1. FEXOFENADINE [Concomitant]
  2. PLAVIX [Suspect]
     Route: 065
     Dates: start: 20070101
  3. COZAAR [Concomitant]
  4. LORAZEPAM [Concomitant]
  5. OMEPRAZOLE [Concomitant]
  6. AMOXICILLIN [Concomitant]
  7. FLOMAX [Concomitant]
  8. TEMAZ [Concomitant]

REACTIONS (4)
  - DIZZINESS [None]
  - ASTHENIA [None]
  - INSOMNIA [None]
  - TOOTH DISORDER [None]
